FAERS Safety Report 5688826-8 (Version None)
Quarter: 2008Q1

REPORT INFORMATION
  Report Type: 
  Country: None (occurrence: None)
  Receive Date: 20080331
  Receipt Date: 20020129
  Transmission Date: 20080703
  Serious: Yes (Death)
  Sender: FDA-Public Use
  Company Number: IT-ROCHE-306231

PATIENT
  Age: 38 Year
  Sex: Female

DRUGS (2)
  1. ROCEPHIN [Suspect]
     Indication: BRONCHITIS
     Route: 030
     Dates: start: 20020128, end: 20020128
  2. BENTELAN [Concomitant]
     Route: 030
     Dates: start: 20020128, end: 20020128

REACTIONS (1)
  - ANAPHYLACTIC SHOCK [None]
